FAERS Safety Report 20126485 (Version 2)
Quarter: 2021Q4

REPORT INFORMATION
  Report Type: Spontaneous
  Country: GB (occurrence: GB)
  Receive Date: 20211129
  Receipt Date: 20211201
  Transmission Date: 20220303
  Serious: Yes (Hospitalization, Other)
  Sender: FDA-Public Use
  Company Number: GB-ABBVIE-21K-167-4174688-00

PATIENT
  Age: 69 Year
  Sex: Male

DRUGS (8)
  1. DIVALPROEX SODIUM [Suspect]
     Active Substance: DIVALPROEX SODIUM
     Indication: Bipolar disorder
     Route: 065
  2. DIVALPROEX SODIUM [Suspect]
     Active Substance: DIVALPROEX SODIUM
     Dosage: 1 DF
     Route: 065
  3. WARFARIN SODIUM [Suspect]
     Active Substance: WARFARIN SODIUM
     Indication: Atrial fibrillation
     Route: 065
  4. OLANZAPINE [Concomitant]
     Active Substance: OLANZAPINE
     Indication: Product used for unknown indication
  5. ZOPICLONE [Concomitant]
     Active Substance: ZOPICLONE
     Indication: Product used for unknown indication
  6. BISOPROLOL [Concomitant]
     Active Substance: BISOPROLOL
     Indication: Product used for unknown indication
  7. FUROSEMIDE [Concomitant]
     Active Substance: FUROSEMIDE
     Indication: Product used for unknown indication
  8. FLUCLOXACILLIN [Concomitant]
     Active Substance: FLUCLOXACILLIN
     Indication: Product used for unknown indication

REACTIONS (15)
  - Fall [Unknown]
  - Confusional state [Recovering/Resolving]
  - International normalised ratio increased [Recovered/Resolved]
  - Restlessness [Recovering/Resolving]
  - Mood altered [Recovering/Resolving]
  - Disorganised speech [Recovering/Resolving]
  - Pressure of speech [Recovering/Resolving]
  - Agitation [Recovering/Resolving]
  - Irritability [Recovering/Resolving]
  - Thinking abnormal [Recovering/Resolving]
  - Flight of ideas [Recovering/Resolving]
  - Toxicity to various agents [Recovering/Resolving]
  - Sleep disorder [Recovering/Resolving]
  - Mania [Recovering/Resolving]
  - Ataxia [Recovering/Resolving]
